FAERS Safety Report 7648733-8 (Version None)
Quarter: 2011Q3

REPORT INFORMATION
  Report Type: 
  Country: None (occurrence: None)
  Receive Date: 20110801
  Receipt Date: 20110722
  Transmission Date: 20111222
  Serious: Yes (Other)
  Sender: FDA-Public Use
  Company Number: PHHY2011AU66641

PATIENT
  Sex: Female

DRUGS (1)
  1. CERTICAN [Suspect]
     Dosage: UNK

REACTIONS (2)
  - INTRACRANIAL ANEURYSM [None]
  - IDIOPATHIC PULMONARY FIBROSIS [None]
